FAERS Safety Report 15392805 (Version 2)
Quarter: 2019Q2

REPORT INFORMATION
  Report Type: Spontaneous
  Country: US (occurrence: US)
  Receive Date: 20180917
  Receipt Date: 20190521
  Transmission Date: 20190711
  Serious: Yes (Other)
  Sender: FDA-Public Use
  Company Number: US-CARDINAL HEALTH 414, LLC-2055009

PATIENT
  Age: 32 Year
  Sex: Female
  Weight: 102.73 kg

DRUGS (1)
  1. TECHNETIUM TC-99M SESTAMIBI KIT [Suspect]
     Active Substance: TECHNETIUM TC-99M SESTAMIBI
     Indication: SCAN MYOCARDIAL PERFUSION
     Route: 042
     Dates: start: 20180904, end: 20180904

REACTIONS (5)
  - Hypertension [Recovered/Resolved]
  - Tremor [Recovered/Resolved]
  - Chest pain [Unknown]
  - Heart rate increased [Recovered/Resolved]
  - Loss of consciousness [Recovered/Resolved]

NARRATIVE: CASE EVENT DATE: 20180904
